FAERS Safety Report 15709516 (Version 2)
Quarter: 2018Q4

REPORT INFORMATION
  Report Type: Spontaneous
  Country: US (occurrence: US)
  Receive Date: 20181211
  Receipt Date: 20181217
  Transmission Date: 20190205
  Serious: Yes (Other)
  Sender: FDA-Public Use
  Company Number: US-PFIZER INC-2018504005

PATIENT
  Age: 59 Year
  Sex: Female
  Weight: 127 kg

DRUGS (2)
  1. GENOTROPIN [Suspect]
     Active Substance: SOMATROPIN
     Indication: GROWTH HORMONE DEFICIENCY
     Dosage: UNK, 1X/DAY [DIALS 6 ON THE PEN, AND SHE IS UNSURE OF UNITS]
     Route: 058
     Dates: start: 201802
  2. GENOTROPIN [Suspect]
     Active Substance: SOMATROPIN
     Dosage: 0.4 MG, UNK [SHE IS UNSURE OF THE DOSAGE UNITS, BUT SHE THINKS THE UNITS ARE MG]

REACTIONS (10)
  - Multiple allergies [Unknown]
  - Carpal tunnel syndrome [Recovering/Resolving]
  - Poor quality sleep [Unknown]
  - Hypothalamo-pituitary disorder [Unknown]
  - Visual impairment [Unknown]
  - Feeling abnormal [Unknown]
  - Pyrexia [Unknown]
  - Condition aggravated [Recovering/Resolving]
  - Pain [Unknown]
  - Asthenia [Unknown]
